FAERS Safety Report 15851128 (Version 2)
Quarter: 2019Q1

REPORT INFORMATION
  Report Type: Spontaneous
  Country: DE (occurrence: DE)
  Receive Date: 20190122
  Receipt Date: 20190211
  Transmission Date: 20190417
  Serious: Yes (Other)
  Sender: FDA-Public Use
  Company Number: DE-ROCHE-2247808

PATIENT
  Age: 39 Year
  Sex: Female
  Weight: 88 kg

DRUGS (2)
  1. XOLAIR [Suspect]
     Active Substance: OMALIZUMAB
     Indication: ASTHMA
     Route: 058
     Dates: start: 201808
  2. XOLAIR [Suspect]
     Active Substance: OMALIZUMAB
     Dosage: UNK
     Route: 058
     Dates: start: 20181219

REACTIONS (7)
  - Retching [Recovering/Resolving]
  - Cough [Recovering/Resolving]
  - Choking [Recovering/Resolving]
  - Dysphagia [Not Recovered/Not Resolved]
  - Suffocation feeling [Recovering/Resolving]
  - Laryngeal oedema [Recovering/Resolving]
  - Dysphonia [Not Recovered/Not Resolved]

NARRATIVE: CASE EVENT DATE: 201808
